FAERS Safety Report 6885734-1 (Version None)
Quarter: 2010Q3

REPORT INFORMATION
  Report Type: 
  Country: None (occurrence: None)
  Receive Date: 20100729
  Receipt Date: 20080725
  Transmission Date: 20110219
  Serious: Yes (Other)
  Sender: FDA-Public Use
  Company Number: US-PFIZER INC-2008062301

PATIENT
  Sex: Female

DRUGS (5)
  1. CELEBREX [Suspect]
     Indication: OSTEOARTHRITIS
     Dates: start: 20080101, end: 20080101
  2. PREVACID [Concomitant]
  3. SIMVASTATIN [Concomitant]
  4. MORPHINE [Concomitant]
  5. PROCHLORPERAZINE [Concomitant]

REACTIONS (1)
  - HEPATIC ENZYME INCREASED [None]
